FAERS Safety Report 10204974 (Version 1)
Quarter: 2014Q2

REPORT INFORMATION
  Report Type: Spontaneous
  Country: US (occurrence: US)
  Receive Date: 20140529
  Receipt Date: 20140529
  Transmission Date: 20141212
  Serious: Yes (Other)
  Sender: FDA-Public Use
  Company Number: CHPA2014US007201

PATIENT
  Sex: 0

DRUGS (1)
  1. EXCEDRIN MIGRAINE [Suspect]
     Indication: MIGRAINE
     Route: 048

REACTIONS (4)
  - Intestinal ulcer [Unknown]
  - Hiatus hernia [Unknown]
  - Gastritis [Unknown]
  - Oesophagitis [Unknown]
